FAERS Safety Report 18241211 (Version 3)
Quarter: 2020Q3

REPORT INFORMATION
  Report Type: Report from Study
  Country: US (occurrence: US)
  Receive Date: 20200908
  Receipt Date: 20200923
  Transmission Date: 20201103
  Serious: Yes (Other)
  Sender: FDA-Public Use
  Company Number: US-VIIV HEALTHCARE LIMITED-US2020GSK178611

PATIENT
  Age: 34 Year
  Sex: Female
  Weight: 74.8 kg

DRUGS (4)
  1. MARIJUANA [Concomitant]
     Active Substance: CANNABIS SATIVA SUBSP. INDICA TOP
     Dosage: 1 DF, QD
     Route: 048
     Dates: start: 20181227
  2. METRONIDAZOLE. [Concomitant]
     Active Substance: METRONIDAZOLE
  3. FOLATE SUPPLEMENT [Concomitant]
  4. DOLUTEGRAVIR [Suspect]
     Active Substance: DOLUTEGRAVIR
     Indication: HIV INFECTION
     Dosage: 2 DF, QD
     Route: 048
     Dates: start: 20181227

REACTIONS (2)
  - Abortion infected [Recovered/Resolved]
  - Abortion spontaneous [Unknown]

NARRATIVE: CASE EVENT DATE: 20190110
